FAERS Safety Report 5616394-5 (Version None)
Quarter: 2008Q1

REPORT INFORMATION
  Report Type: 
  Country: None (occurrence: None)
  Receive Date: 20080207
  Receipt Date: 20080128
  Transmission Date: 20080703
  Serious: Yes (Life-Threatening, Hospitalization)
  Sender: FDA-Public Use
  Company Number: DE-BAYER-200812226GPV

PATIENT
  Sex: Female

DRUGS (3)
  1. MIRENA [Suspect]
     Route: 015
     Dates: end: 20060201
  2. MIRENA [Suspect]
     Route: 015
     Dates: start: 20060201, end: 20071022
  3. MIRENA [Concomitant]
     Route: 015

REACTIONS (11)
  - ANTEPARTUM HAEMORRHAGE [None]
  - BACK PAIN [None]
  - BACTERIAL INFECTION [None]
  - ECTOPIC PREGNANCY WITH INTRAUTERINE DEVICE [None]
  - FATIGUE [None]
  - GENITAL HAEMORRHAGE [None]
  - HYPOTENSION [None]
  - MALAISE [None]
  - MUSCLE SPASMS [None]
  - POSTPARTUM HAEMORRHAGE [None]
  - PROCEDURAL PAIN [None]
